FAERS Safety Report 14709861 (Version 1)
Quarter: 2018Q2

REPORT INFORMATION
  Report Type: Spontaneous
  Country: JO (occurrence: JO)
  Receive Date: 20180403
  Receipt Date: 20180403
  Transmission Date: 20180711
  Serious: Yes (Death, Hospitalization)
  Sender: FDA-Public Use
  Company Number: JO-MYLANLABS-2018M1020101

PATIENT
  Age: 29 Month
  Sex: Male

DRUGS (5)
  1. DOXORUBICIN [Suspect]
     Active Substance: DOXORUBICIN
     Indication: B-CELL TYPE ACUTE LEUKAEMIA
     Route: 065
  2. ASPARGIN                           /00466901/ [Suspect]
     Active Substance: ASPARTIC ACID
     Indication: B-CELL TYPE ACUTE LEUKAEMIA
     Dosage: WEEKLY FOR TWO DOSES
     Route: 065
  3. VINCRISTINE [Suspect]
     Active Substance: VINCRISTINE
     Indication: B-CELL TYPE ACUTE LEUKAEMIA
     Route: 065
  4. DEXAMETHASONE. [Suspect]
     Active Substance: DEXAMETHASONE
     Indication: B-CELL TYPE ACUTE LEUKAEMIA
     Route: 065
  5. MERCAPTOPURINE. [Suspect]
     Active Substance: MERCAPTOPURINE
     Indication: B-CELL TYPE ACUTE LEUKAEMIA
     Dosage: DAILY
     Route: 065

REACTIONS (7)
  - Metabolic acidosis [Fatal]
  - Respiratory distress [Fatal]
  - Coagulation test abnormal [Fatal]
  - Herpes simplex hepatitis [Fatal]
  - Multiple organ dysfunction syndrome [Fatal]
  - Hypotension [Fatal]
  - Cardiac arrest [Fatal]
